FAERS Safety Report 4921444-5 (Version None)
Quarter: 2006Q1

REPORT INFORMATION
  Report Type: 
  Country: None (occurrence: None)
  Receive Date: 20060224
  Receipt Date: 20060110
  Transmission Date: 20060701
  Serious: Yes (Hospitalization)
  Sender: FDA-Public Use
  Company Number: PHBS2006JP00770

PATIENT
  Age: 68 Year
  Sex: Female

DRUGS (10)
  1. TOFRANIL [Suspect]
     Indication: DEPRESSION
     Dosage: 25 MG, BID
     Route: 048
     Dates: start: 20050913, end: 20060111
  2. TRYPTANOL [Suspect]
     Indication: DEPRESSION
     Dosage: 10 MG, QD
     Route: 048
     Dates: start: 20051011, end: 20060111
  3. JUVELA NICOTINATE [Concomitant]
     Indication: SCLERODERMA
     Dosage: 300 MG/D
     Route: 048
     Dates: start: 20020101
  4. PLETAL [Concomitant]
     Indication: SCLERODERMA
     Dosage: 100 MG/D
     Route: 048
     Dates: start: 20031001
  5. DOGMATYL [Concomitant]
     Indication: DEPRESSION
     Dosage: 300 MG/D
     Route: 048
     Dates: start: 20031101
  6. MYONAL [Concomitant]
     Indication: MUSCULOSKELETAL STIFFNESS
     Dosage: 50 MG/D
     Route: 048
     Dates: start: 20031201
  7. ARIMIDEX [Concomitant]
     Indication: BREAST CANCER FEMALE
     Dosage: 1 MG/D
     Route: 048
     Dates: start: 20040101
  8. MAGNESIUM OXIDE [Concomitant]
     Indication: CONSTIPATION
     Dosage: 1 G/D
     Dates: start: 20050101
  9. DEPAS [Concomitant]
     Indication: INSOMNIA
     Dosage: 0.5 MG/D
     Route: 048
     Dates: start: 20040101
  10. LENDORMIN [Concomitant]
     Indication: INSOMNIA
     Dosage: 0.25 MG/D
     Route: 048

REACTIONS (3)
  - CONCOMITANT DISEASE AGGRAVATED [None]
  - EOSINOPHIL COUNT INCREASED [None]
  - INTERSTITIAL LUNG DISEASE [None]
